FAERS Safety Report 10657020 (Version 2)
Quarter: 2015Q1

REPORT INFORMATION
  Report Type: Report from Study
  Country: US (occurrence: US)
  Receive Date: 20141217
  Receipt Date: 20150101
  Transmission Date: 20150720
  Serious: Yes (Death, Hospitalization)
  Sender: FDA-Public Use
  Company Number: US-BIOGENIDEC-2014BI129788

PATIENT
  Age: 72 Year
  Sex: Female

DRUGS (1)
  1. TYSABRI [Suspect]
     Active Substance: NATALIZUMAB
     Indication: MULTIPLE SCLEROSIS
     Route: 042
     Dates: start: 20131212, end: 20140211

REACTIONS (6)
  - Sepsis [Unknown]
  - Pneumonia [Fatal]
  - Non-cardiac chest pain [Unknown]
  - Multiple sclerosis [Fatal]
  - Urinary tract infection pseudomonal [Fatal]
  - Leukocytosis [Fatal]
